FAERS Safety Report 14953422 (Version 1)
Quarter: 2018Q2

REPORT INFORMATION
  Report Type: Spontaneous
  Country: US (occurrence: US)
  Receive Date: 20180530
  Receipt Date: 20180530
  Transmission Date: 20180711
  Serious: Yes (Hospitalization, Other)
  Sender: FDA-Public Use
  Company Number: US-JNJFOC-20180537053

PATIENT
  Sex: Female
  Weight: 70.3 kg

DRUGS (9)
  1. ADEMPAS [Suspect]
     Active Substance: RIOCIGUAT
     Indication: PULMONARY ARTERIAL HYPERTENSION
     Route: 048
     Dates: start: 20170906
  2. ADEMPAS [Suspect]
     Active Substance: RIOCIGUAT
     Indication: PULMONARY ARTERIAL HYPERTENSION
     Route: 048
  3. OPSUMIT [Concomitant]
     Active Substance: MACITENTAN
     Route: 065
  4. ADEMPAS [Suspect]
     Active Substance: RIOCIGUAT
     Indication: PULMONARY ARTERIAL HYPERTENSION
     Route: 048
  5. XARELTO [Suspect]
     Active Substance: RIVAROXABAN
     Indication: PRODUCT USED FOR UNKNOWN INDICATION
     Route: 048
  6. OXYGEN. [Suspect]
     Active Substance: OXYGEN
     Indication: PRODUCT USED FOR UNKNOWN INDICATION
     Route: 065
  7. REMODULIN [Concomitant]
     Active Substance: TREPROSTINIL
     Route: 065
  8. ADEMPAS [Suspect]
     Active Substance: RIOCIGUAT
     Indication: PULMONARY ARTERIAL HYPERTENSION
     Route: 048
     Dates: start: 20170906
  9. LETAIRIS [Concomitant]
     Active Substance: AMBRISENTAN
     Route: 065

REACTIONS (18)
  - Oxygen therapy [Unknown]
  - Dyspnoea [Unknown]
  - Gastrooesophageal reflux disease [Unknown]
  - Nasal congestion [Unknown]
  - Hospitalisation [Unknown]
  - Scleroderma [Unknown]
  - Scab [Not Recovered/Not Resolved]
  - Pulmonary arterial hypertension [Unknown]
  - Fatigue [Unknown]
  - Nausea [Not Recovered/Not Resolved]
  - Decreased appetite [Not Recovered/Not Resolved]
  - Gastric disorder [Unknown]
  - Weight decreased [Not Recovered/Not Resolved]
  - Fluid retention [Unknown]
  - Anxiety [Unknown]
  - Epistaxis [Not Recovered/Not Resolved]
  - Dyspepsia [Unknown]
  - Headache [Unknown]
